FAERS Safety Report 13641590 (Version 1)
Quarter: 2017Q2

REPORT INFORMATION
  Report Type: Report from Study
  Country: US (occurrence: US)
  Receive Date: 20170612
  Receipt Date: 20170612
  Transmission Date: 20170830
  Serious: Yes (Hospitalization)
  Sender: FDA-Public Use
  Company Number: US-JNJFOC-20170607782

PATIENT
  Sex: Male

DRUGS (12)
  1. RITUXAN [Concomitant]
     Active Substance: RITUXIMAB
  2. LOSARTAN POTASSIUM. [Concomitant]
     Active Substance: LOSARTAN POTASSIUM
  3. CYANOCOBALAMIN. [Concomitant]
     Active Substance: CYANOCOBALAMIN
  4. KRILL OIL [Concomitant]
     Active Substance: DIETARY SUPPLEMENT
  5. VITAMIN D2 [Concomitant]
     Active Substance: ERGOCALCIFEROL
  6. IRBESARTAN. [Concomitant]
     Active Substance: IRBESARTAN
  7. MULTIVITAMINS [Concomitant]
     Active Substance: VITAMINS
  8. IMBRUVICA [Suspect]
     Active Substance: IBRUTINIB
     Indication: CHRONIC LYMPHOCYTIC LEUKAEMIA
     Route: 048
     Dates: start: 20151106
  9. HCTZ [Concomitant]
     Active Substance: HYDROCHLOROTHIAZIDE
  10. TREANDA [Concomitant]
     Active Substance: BENDAMUSTINE HYDROCHLORIDE
  11. GEMFIBROZIL. [Concomitant]
     Active Substance: GEMFIBROZIL
  12. METOPROLOL SUCCINATE. [Concomitant]
     Active Substance: METOPROLOL SUCCINATE

REACTIONS (1)
  - Transient ischaemic attack [Unknown]
